FAERS Safety Report 8520928-0 (Version None)
Quarter: 2012Q3

REPORT INFORMATION
  Report Type: 
  Country: None (occurrence: None)
  Receive Date: 20120719
  Receipt Date: 20120716
  Transmission Date: 20120928
  Serious: No
  Sender: FDA-Public Use
  Company Number: US-PFIZER INC-2012171478

PATIENT
  Sex: Male

DRUGS (4)
  1. LYRICA [Suspect]
     Dosage: 150 MG, 3X/DAY
  2. HYDROCODONE [Concomitant]
     Dosage: UNK
  3. METFORMIN HYDROCHLORIDE [Suspect]
     Indication: DIABETES MELLITUS
     Dosage: 500 MG, UNK
  4. GLIPIZIDE [Suspect]
     Indication: DIABETES MELLITUS
     Dosage: 10 MG, UNK

REACTIONS (5)
  - SOMNOLENCE [None]
  - DIZZINESS [None]
  - FATIGUE [None]
  - VISION BLURRED [None]
  - PERSONALITY CHANGE [None]
